FAERS Safety Report 6726283-0 (Version None)
Quarter: 2010Q2

REPORT INFORMATION
  Report Type: 
  Country: None (occurrence: None)
  Receive Date: 20100514
  Receipt Date: 20100505
  Transmission Date: 20101027
  Serious: Yes (Hospitalization)
  Sender: FDA-Public Use
  Company Number: A0730714A

PATIENT
  Age: 48 Year
  Sex: Female
  Weight: 100 kg

DRUGS (10)
  1. ELTROMBOPAG [Suspect]
     Indication: THROMBOCYTOPENIA
     Dosage: 25MG PER DAY
     Route: 048
     Dates: start: 20080404, end: 20080517
  2. PEGASYS [Suspect]
     Dosage: 180UG WEEKLY
     Route: 058
     Dates: start: 20080425, end: 20080509
  3. COPEGUS [Suspect]
     Dosage: 1200MG PER DAY
     Route: 048
     Dates: start: 20080425, end: 20080517
  4. ELTROMBOPAG [Suspect]
     Dosage: 25MG PER DAY
     Route: 048
     Dates: start: 20080404, end: 20080425
  5. METHADONE [Concomitant]
     Indication: DRUG ABUSE
     Dosage: 90MG PER DAY
     Route: 048
  6. BENICAR [Concomitant]
     Indication: HYPERTENSION
     Dosage: 40MG PER DAY
     Route: 048
     Dates: start: 20070101
  7. FLONASE [Concomitant]
     Indication: SEASONAL ALLERGY
     Dosage: .05MG AS REQUIRED
     Route: 055
     Dates: start: 20080301
  8. AMBIEN [Concomitant]
     Dosage: 5MG AS REQUIRED
     Route: 048
     Dates: start: 20080502
  9. QUININE [Concomitant]
     Dosage: 260MG AS REQUIRED
     Route: 048
     Dates: start: 20060101, end: 20080417
  10. NYQUIL [Concomitant]
     Indication: SLEEP DISORDER
     Route: 048

REACTIONS (8)
  - ABDOMINAL PAIN [None]
  - ANHEDONIA [None]
  - FATIGUE [None]
  - HEPATITIS ALCOHOLIC [None]
  - MALAISE [None]
  - NAUSEA [None]
  - PRURITUS [None]
  - PYREXIA [None]
